FAERS Safety Report 10517193 (Version 2)
Quarter: 2014Q4

REPORT INFORMATION
  Report Type: Spontaneous
  Country: BE (occurrence: BE)
  Receive Date: 20141014
  Receipt Date: 20141210
  Transmission Date: 20150528
  Serious: Yes (Other)
  Sender: FDA-Public Use
  Company Number: BE-BAXTER-2014BAX060427

PATIENT
  Age: 53 Year
  Sex: Female

DRUGS (2)
  1. TISSUCOL [Suspect]
     Active Substance: FIBRINOGEN HUMAN\THROMBIN HUMAN
     Indication: FACE LIFT
     Route: 065
     Dates: start: 20140922
  2. TISSUCOL [Suspect]
     Active Substance: FIBRINOGEN HUMAN\THROMBIN HUMAN
     Indication: OFF LABEL USE

REACTIONS (3)
  - Product quality issue [Recovered/Resolved]
  - Application site hypersensitivity [Recovering/Resolving]
  - Application site pain [Recovered/Resolved]

NARRATIVE: CASE EVENT DATE: 20140922
